FAERS Safety Report 5025521-2 (Version None)
Quarter: 2006Q2

REPORT INFORMATION
  Report Type: 
  Country: None (occurrence: None)
  Receive Date: 20060607
  Receipt Date: 20060524
  Transmission Date: 20061013
  Serious: Yes (Hospitalization, Other)
  Sender: FDA-Public Use
  Company Number: 200610269BFR

PATIENT
  Age: 43 Year
  Sex: Female

DRUGS (3)
  1. CIFLOX [Suspect]
     Indication: DISEASE RECURRENCE
     Dates: end: 20060301
  2. CIFLOX [Suspect]
     Indication: URINARY TRACT INFECTION
     Dates: end: 20060301
  3. NOROXIN [Concomitant]

REACTIONS (4)
  - EPICONDYLITIS [None]
  - PERIARTHRITIS [None]
  - TENDON RUPTURE [None]
  - URINARY TRACT DISORDER [None]
